FAERS Safety Report 8932603 (Version 1)
Quarter: 2012Q4

REPORT INFORMATION
  Report Type: 
  Country: JP (occurrence: JP)
  Receive Date: 20121129
  Receipt Date: 20121129
  Transmission Date: 20130627
  Serious: Yes (Other)
  Sender: FDA-Public Use
  Company Number: JP-JNJFOC-20121111895

PATIENT

DRUGS (4)
  1. TRAMCET [Suspect]
     Indication: PAIN
     Route: 048
  2. RHEUMATREX [Concomitant]
     Route: 048
  3. ENBREL [Concomitant]
     Route: 058
  4. THEOLONG [Concomitant]
     Route: 048

REACTIONS (2)
  - Loss of consciousness [Recovered/Resolved]
  - Feeling abnormal [Recovered/Resolved]
